FAERS Safety Report 24107832 (Version 2)
Quarter: 2024Q3

REPORT INFORMATION
  Report Type: Spontaneous
  Country: GB (occurrence: GB)
  Receive Date: 20240718
  Receipt Date: 20240810
  Transmission Date: 20241017
  Serious: Yes (Other)
  Sender: CELLTRION
  Company Number: GB-CELLTRION INC.-2024GB017112

PATIENT

DRUGS (1)
  1. YUFLYMA [Suspect]
     Active Substance: ADALIMUMAB-AATY
     Indication: Ankylosing spondylitis
     Dosage: 40MG PEN PK2 (TO: JULY 2024 (ON HOLD))
     Route: 058
     Dates: start: 202404, end: 202407

REACTIONS (3)
  - Lymphadenopathy [Unknown]
  - Rash [Unknown]
  - Intentional dose omission [Unknown]
